FAERS Safety Report 6024989-2 (Version None)
Quarter: 2008Q4

REPORT INFORMATION
  Report Type: 
  Country: None (occurrence: None)
  Receive Date: 20081231
  Receipt Date: 20081222
  Transmission Date: 20090506
  Serious: Yes (Other)
  Sender: FDA-Public Use
  Company Number: AU-AVENTIS-200821856GDDC

PATIENT
  Sex: Female

DRUGS (2)
  1. TAXOTERE [Suspect]
     Dosage: DOSE: UNK
     Dates: end: 20080901
  2. HERCEPTIN [Concomitant]
     Dosage: DOSE: UNK

REACTIONS (3)
  - BASAL CELL CARCINOMA [None]
  - GRANULOMA SKIN [None]
  - HYPERTROPHIC SCAR [None]
